FAERS Safety Report 20462626 (Version 1)
Quarter: 2022Q1

REPORT INFORMATION
  Report Type: Spontaneous
  Country: US (occurrence: US)
  Receive Date: 20220211
  Receipt Date: 20220211
  Transmission Date: 20220424
  Serious: Yes (Other)
  Sender: FDA-Public Use
  Company Number: US-BAYER-2022A019758

PATIENT
  Age: 59 Year
  Sex: Female

DRUGS (1)
  1. CORICIDIN HBP MAXIMUM STRENGTH COLD, COUGH AND FLU [Suspect]
     Active Substance: ACETAMINOPHEN\DEXTROMETHORPHAN HYDROBROMIDE\GUAIFENESIN
     Indication: Nasopharyngitis
     Dosage: 2 DF
     Route: 048
     Dates: start: 20220206, end: 20220206

REACTIONS (5)
  - Choking [None]
  - Pharyngeal injury [None]
  - Presyncope [None]
  - Throat irritation [None]
  - Product use complaint [None]

NARRATIVE: CASE EVENT DATE: 20220206
